FAERS Safety Report 12059049 (Version 2)
Quarter: 2017Q2

REPORT INFORMATION
  Report Type: Spontaneous
  Country: US (occurrence: US)
  Receive Date: 20160210
  Receipt Date: 20170428
  Transmission Date: 20170829
  Serious: No
  Sender: FDA-Public Use
  Company Number: US-STRIDES ARCOLAB LIMITED-2015SP002071

PATIENT

DRUGS (2)
  1. TACROLIMUS. [Suspect]
     Active Substance: TACROLIMUS
     Indication: PANCREAS ISLET CELL TRANSPLANT
     Dosage: UNK UNK, UNKNOWN
     Route: 065
     Dates: end: 201408
  2. SIROLIMUS. [Suspect]
     Active Substance: SIROLIMUS
     Indication: PANCREAS ISLET CELL TRANSPLANT
     Dosage: UNK, UNKNOWN
     Route: 065
     Dates: end: 201408

REACTIONS (1)
  - Mouth ulceration [Unknown]
